FAERS Safety Report 25173837 (Version 1)
Quarter: 2025Q2

REPORT INFORMATION
  Report Type: Spontaneous
  Country: GR (occurrence: GR)
  Receive Date: 20250408
  Receipt Date: 20250408
  Transmission Date: 20250717
  Serious: Yes (Hospitalization, Other)
  Sender: BAYER
  Company Number: GR-MLMSERVICE-20250327-PI458954-00230-1

PATIENT
  Age: 76 Year
  Sex: Male

DRUGS (1)
  1. MOXIFLOXACIN [Suspect]
     Active Substance: MOXIFLOXACIN
     Indication: Respiratory tract infection
     Route: 048

REACTIONS (6)
  - Autoimmune haemolytic anaemia [Recovering/Resolving]
  - Renal impairment [Recovering/Resolving]
  - Pulmonary function test decreased [Recovering/Resolving]
  - Haemoglobin decreased [None]
  - Product use in unapproved indication [None]
  - Product prescribing issue [None]
